FAERS Safety Report 12690188 (Version 1)
Quarter: 2016Q3

REPORT INFORMATION
  Report Type: Spontaneous
  Country: GB (occurrence: GB)
  Receive Date: 20160826
  Receipt Date: 20160826
  Transmission Date: 20161109
  Serious: Yes (Other)
  Sender: FDA-Public Use
  Company Number: GB-JNJFOC-20160818634

PATIENT
  Age: 77 Year
  Sex: Female
  Weight: 52 kg

DRUGS (11)
  1. MESALAZINE [Concomitant]
     Active Substance: MESALAMINE
     Indication: PRODUCT USED FOR UNKNOWN INDICATION
     Dosage: DOSE: 1 (UNIT UNSPECIFIED). CUMULATIVE DOSE TO FIRST REACTION:142.958333
     Route: 065
     Dates: start: 20160321
  2. ADCAL [Concomitant]
     Active Substance: CALCIUM CARBONATE
     Indication: PRODUCT USED FOR UNKNOWN INDICATION
     Dosage: DOSE: 1 (UNIT UNSPECIFIED) CUMULATIVE DOSE TO FIRST REACTION:389.916666 (UNIT UNSPECIFIED)
     Route: 065
     Dates: start: 20160129
  3. FERROUS FUMARATE [Concomitant]
     Active Substance: FERROUS FUMARATE
     Indication: PRODUCT USED FOR UNKNOWN INDICATION
     Dosage: DOSE: 1 (UNIT UNSPECIFIED).??CUMULATIVE DOSE TO FIRST REACTION: 1203 (UNIT UNSPECIFIED).
     Route: 065
     Dates: start: 20150707
  4. COCODAMOL [Suspect]
     Active Substance: ACETAMINOPHEN\CODEINE PHOSPHATE
     Indication: PRODUCT USED FOR UNKNOWN INDICATION
     Route: 065
     Dates: start: 20160810
  5. SENNA [Concomitant]
     Active Substance: SENNA LEAF\SENNOSIDES\SENNOSIDES A AND B
     Indication: PRODUCT USED FOR UNKNOWN INDICATION
     Dosage: TAKE 1 OR 2 AT NIGHT
     Route: 065
     Dates: start: 20160606, end: 20160621
  6. LEVOTHYROXINE. [Concomitant]
     Active Substance: LEVOTHYROXINE
     Indication: PRODUCT USED FOR UNKNOWN INDICATION
     Dosage: DOSE: 1 (UNIT UNSPECIFIED). CUMULATIVE DOSE TO FIRST REACTION:142.958333
     Route: 065
     Dates: start: 20160321
  7. PIOGLITAZONE. [Concomitant]
     Active Substance: PIOGLITAZONE
     Indication: PRODUCT USED FOR UNKNOWN INDICATION
     Dosage: DOSE: 1 (UNIT UNSPECIFIED). CUMULATIVE DOSE TO FIRST REACTION:142.958333 (UNIT UNSPECIFIED)
     Route: 065
     Dates: start: 20160321
  8. PARACETAMOL [Concomitant]
     Active Substance: ACETAMINOPHEN
     Indication: PRODUCT USED FOR UNKNOWN INDICATION
     Dosage: AS REQUIRED 3 TIMES A DAY
     Route: 065
     Dates: start: 20160129
  9. AMLODIPINE [Concomitant]
     Active Substance: AMLODIPINE BESYLATE
     Indication: PRODUCT USED FOR UNKNOWN INDICATION
     Dosage: DOSE: 1 (UNIT UNSPECIFIED). CUMULATIVE DOSE TO FIRST REACTION:190.958333 (UNIT UNSPECIFIED)
     Route: 065
     Dates: start: 20160202
  10. ATORVASTATIN [Concomitant]
     Active Substance: ATORVASTATIN
     Indication: PRODUCT USED FOR UNKNOWN INDICATION
     Dosage: DOSE: 1 (UNIT UNSPECIFIED). CUMULATIVE DOSE TO FIRST REACTION: 440.0 (UNIT UNSPECIFIED).
     Route: 065
     Dates: start: 20150529
  11. METFORMIN [Concomitant]
     Active Substance: METFORMIN HYDROCHLORIDE
     Indication: PRODUCT USED FOR UNKNOWN INDICATION
     Dosage: DOSE: 1 (UNIT UNSPECIFIED). CUMULATIVE DOSE TO FIRST REACTION: 285.916666, WITH OR AFTER FOOD
     Route: 065
     Dates: start: 20160321

REACTIONS (1)
  - Malaise [Unknown]

NARRATIVE: CASE EVENT DATE: 20160811
